FAERS Safety Report 9758553 (Version 1)
Quarter: 2013Q4

REPORT INFORMATION
  Report Type: Spontaneous
  Country: US (occurrence: None)
  Receive Date: 20131216
  Receipt Date: 20131216
  Transmission Date: 20140711
  Serious: Yes (Other)
  Sender: FDA-Public Use
  Company Number: CABO-13002464

PATIENT
  Age: 44 Year
  Sex: Female
  Weight: 61 kg

DRUGS (1)
  1. COMETRIQ (CABOZANTINIB) CAPSULE [Suspect]
     Indication: MEDULLARY THYROID CANCER
     Dosage: 140 MG, QD, ORAL

REACTIONS (6)
  - Blood pressure increased [None]
  - Menorrhagia [None]
  - Glossodynia [None]
  - Rash [None]
  - Palmar-plantar erythrodysaesthesia syndrome [None]
  - Ageusia [None]
